FAERS Safety Report 10098468 (Version 1)
Quarter: 2014Q2

REPORT INFORMATION
  Report Type: Spontaneous
  Country: US (occurrence: None)
  Receive Date: 20140422
  Receipt Date: 20140422
  Transmission Date: 20141212
  Serious: Yes (Disabling)
  Sender: FDA-Public Use
  Company Number: None

PATIENT
  Age: 50 Year
  Sex: Female
  Weight: 72.5 kg

DRUGS (10)
  1. CYCLOPHOSPHAMIDE [Suspect]
     Indication: BREAST CANCER
     Route: 042
     Dates: start: 20140305, end: 20140402
  2. DOXORUBICIN [Concomitant]
  3. PALONOSETRON [Concomitant]
  4. DEXAMETHASONE [Concomitant]
  5. FOSAPREPITANT [Concomitant]
  6. PEGFILGRASTIM [Concomitant]
  7. SERTRALINE [Concomitant]
  8. PROCHLORPERAZINE [Concomitant]
  9. HYDROCODONE/ACETAMINOPHEN [Concomitant]
  10. PRED FORTE EYE DROPS [Concomitant]

REACTIONS (1)
  - Vision blurred [None]
